FAERS Safety Report 4552806-6 (Version None)
Quarter: 2005Q1

REPORT INFORMATION
  Report Type: 
  Country: None (occurrence: None)
  Receive Date: 20050114
  Receipt Date: 20050105
  Transmission Date: 20050727
  Serious: Yes (Hospitalization)
  Sender: FDA-Public Use
  Company Number: US-ROCHE-391791

PATIENT
  Age: 55 Year
  Sex: Female

DRUGS (1)
  1. TAMIFLU [Suspect]
     Route: 048

REACTIONS (1)
  - OXYGEN SATURATION DECREASED [None]
